FAERS Safety Report 25222892 (Version 1)
Quarter: 2025Q2

REPORT INFORMATION
  Report Type: Spontaneous
  Country: US (occurrence: US)
  Receive Date: 20250422
  Receipt Date: 20250422
  Transmission Date: 20250717
  Serious: No
  Sender: JOHNSON AND JOHNSON
  Company Number: US-JNJFOC-20250357965

PATIENT
  Age: 68 Year
  Sex: Male

DRUGS (1)
  1. HALDOL [Suspect]
     Active Substance: HALOPERIDOL
     Indication: Bipolar disorder
     Route: 030

REACTIONS (4)
  - Weight abnormal [Unknown]
  - Tremor [Unknown]
  - Inadequate diet [Unknown]
  - Sexual dysfunction [Unknown]
